FAERS Safety Report 9204529 (Version 1)
Quarter: 2013Q1

REPORT INFORMATION
  Report Type: Spontaneous
  Country: US (occurrence: None)
  Receive Date: 20120709
  Receipt Date: 20120709
  Transmission Date: 20140127
  Serious: No
  Sender: FDA-Public Use
  Company Number: 2012HGS-003447

PATIENT
  Age: 35 Year
  Sex: Female
  Weight: 73.94 kg

DRUGS (7)
  1. BENLYSTA [Suspect]
     Indication: SYSTEMIC LUPUS ERYTHEMATOSUS
     Route: 042
     Dates: start: 20120315
  2. PREVATIO (SILDENAFIL CITRATE) (SILDENAFIL CITRATE) [Concomitant]
  3. PREDNISONE (PREDNISONE) (PREDNISONE) [Concomitant]
  4. OMEPRAZOLE (OMEPRAZOLE) (OMEPRAZOLE) [Concomitant]
  5. FOLIC ACID (FOLIC ACID) (FOLIC ACID) [Concomitant]
  6. CORDRAN (FLUDROXYCORTIDE) (FLUDROXYCORTIDE) [Concomitant]
  7. CALCIUM VITAMIN D (LEVOKIT CA) (COLECALCIFEROL, CALCIUM CARBONATE) [Concomitant]

REACTIONS (4)
  - Peripheral coldness [None]
  - Tachycardia [None]
  - Chills [None]
  - Hypertension [None]
